FAERS Safety Report 8653528 (Version 2)
Quarter: 2012Q4

REPORT INFORMATION
  Report Type: 
  Country: BE (occurrence: BE)
  Receive Date: 20120709
  Receipt Date: 20120914
  Transmission Date: 20130627
  Serious: Yes (Hospitalization, Other)
  Sender: FDA-Public Use
  Company Number: BE-AMGEN-BELSP2012041430

PATIENT
  Age: 80 Year
  Sex: Female

DRUGS (2)
  1. PROLIA [Suspect]
     Indication: OSTEOPOROSIS
     Dosage: 60 mg, q6mo
     Route: 058
     Dates: start: 20110915, end: 20120418
  2. CALX PLUS [Concomitant]
     Indication: OSTEOPOROSIS
     Dosage: UNK UNK, bid
     Route: 048
     Dates: start: 20110822

REACTIONS (3)
  - Pulmonary embolism [Recovered/Resolved]
  - Neoplasm of thymus [Not Recovered/Not Resolved]
  - Dyspnoea [Unknown]
